FAERS Safety Report 18887752 (Version 1)
Quarter: 2021Q1

REPORT INFORMATION
  Report Type: Spontaneous
  Country: US (occurrence: US)
  Receive Date: 20210212
  Receipt Date: 20210212
  Transmission Date: 20210420
  Serious: Yes (Hospitalization, Other)
  Sender: FDA-Public Use
  Company Number: US-LUNDBECK-DKLU3028192

PATIENT
  Age: 1 Year
  Sex: Female
  Weight: 10 kg

DRUGS (2)
  1. SABRIL [Suspect]
     Active Substance: VIGABATRIN
     Indication: INFANTILE SPASMS
     Route: 048
     Dates: start: 201607, end: 201706
  2. MITOCHONDRIAL VITAMINS [Concomitant]

REACTIONS (4)
  - Vomiting [Unknown]
  - Haemoglobin decreased [Recovered/Resolved]
  - Myelosuppression [Recovered/Resolved]
  - Drug ineffective [Unknown]

NARRATIVE: CASE EVENT DATE: 201607
